FAERS Safety Report 8487161-2 (Version None)
Quarter: 2012Q3

REPORT INFORMATION
  Report Type: 
  Country: None (occurrence: None)
  Receive Date: 20120704
  Receipt Date: 20120620
  Transmission Date: 20120928
  Serious: Yes (Hospitalization)
  Sender: FDA-Public Use
  Company Number: US-ROCHE-1080287

PATIENT
  Age: 60 Year
  Sex: Female
  Weight: 64.5 kg

DRUGS (3)
  1. PACLITAXEL [Suspect]
     Indication: OVARIAN EPITHELIAL CANCER
     Dosage: DOSE: OVER 3 HRS ON DAY 1 (CYCLE 1-6)
     Route: 042
     Dates: start: 20120124
  2. AVASTIN [Suspect]
     Indication: OVARIAN EPITHELIAL CANCER
     Dosage: DOSE: OVER 30-90 MINUTES ON DAY 1 OF CYCLES 2
     Route: 042
  3. CARBOPLATIN [Suspect]
     Indication: OVARIAN EPITHELIAL CANCER
     Dosage: DOSE:  AUC:6 ON DAY 1 OF CYCLES (CYCLE 1-6)
     Route: 042
     Dates: start: 20120124

REACTIONS (1)
  - SMALL INTESTINAL OBSTRUCTION [None]
